FAERS Safety Report 4270713-3 (Version None)
Quarter: 2004Q1

REPORT INFORMATION
  Report Type: 
  Country: None (occurrence: None)
  Receive Date: 20040113
  Receipt Date: 20031229
  Transmission Date: 20041129
  Serious: Yes (Hospitalization, Other)
  Sender: FDA-Public Use
  Company Number: 03-376-0768

PATIENT
  Age: 88 Year
  Sex: Female
  Weight: 122 kg

DRUGS (1)
  1. DAUNORUBICIN HCL [Suspect]
     Indication: ACUTE MYELOID LEUKAEMIA
     Dosage: 45 MG/M2 IV DAYS, 1,3
     Route: 042
     Dates: start: 20031001

REACTIONS (9)
  - CHILLS [None]
  - DYSPNOEA [None]
  - FATIGUE [None]
  - INFECTION [None]
  - NEUTROPENIA [None]
  - PETECHIAE [None]
  - PLATELET COUNT DECREASED [None]
  - RED BLOOD CELL COUNT DECREASED [None]
  - WHITE BLOOD CELL COUNT DECREASED [None]
